FAERS Safety Report 9680565 (Version 3)
Quarter: 2013Q4

REPORT INFORMATION
  Report Type: Spontaneous
  Country: US (occurrence: US)
  Receive Date: 20131111
  Receipt Date: 20131217
  Transmission Date: 20140711
  Serious: No
  Sender: FDA-Public Use
  Company Number: US-PFIZER INC-2013320821

PATIENT
  Age: 33 Year
  Sex: Female
  Weight: 69.39 kg

DRUGS (3)
  1. LYRICA [Suspect]
     Indication: NEURALGIA
     Dosage: 75 MG, DAILY
     Route: 048
     Dates: start: 20131021, end: 20131104
  2. LYRICA [Suspect]
     Indication: RADICULAR PAIN
  3. SINGULAIR [Concomitant]
     Indication: ASTHMA
     Dosage: 10 MG, DAILY

REACTIONS (13)
  - Pain in extremity [Unknown]
  - Local swelling [Unknown]
  - Pruritus [Unknown]
  - Urticaria [Unknown]
  - Burning sensation [Unknown]
  - Bronchitis [Unknown]
  - Somnolence [Recovered/Resolved]
  - Feeling abnormal [Unknown]
  - Anorgasmia [Unknown]
  - Nasopharyngitis [Unknown]
  - Neck pain [Unknown]
  - Viral infection [Unknown]
  - Malaise [Unknown]
